FAERS Safety Report 9261652 (Version 2)
Quarter: 2013Q2

REPORT INFORMATION
  Report Type: Report from Study
  Country: US (occurrence: US)
  Receive Date: 20130429
  Receipt Date: 20130506
  Transmission Date: 20140414
  Serious: Yes (Hospitalization)
  Sender: FDA-Public Use
  Company Number: US-ACTELION-A-US2013-82194

PATIENT
  Age: 66 Year
  Sex: Female

DRUGS (17)
  1. TRACLEER [Suspect]
     Indication: PULMONARY ARTERIAL HYPERTENSION
     Dosage: 125 MG, UNK
     Route: 048
     Dates: start: 20121208, end: 2013
  2. LEVOTHYROXINE [Concomitant]
     Dosage: 88 UNK, QD
  3. OMEPRAZOLE [Concomitant]
     Dosage: 20 MG, UNK
  4. FLUOXETINE [Concomitant]
     Dosage: 30 MG, UNK
  5. SPIRONOLACTONE [Concomitant]
     Dosage: 50 MG, BID
  6. LOTARIN [Concomitant]
     Dosage: 10 MG, UNK
  7. LOSARTAN POTASSIUM [Concomitant]
     Dosage: 100 MG, UNK
  8. CARVEDILOL [Concomitant]
     Dosage: 3.125 MG, UNK
  9. SPIRIVA [Concomitant]
     Dosage: UNK UNK, QD
  10. TRAZODONE [Concomitant]
     Dosage: 50 MG, QD
  11. CYCLOBENZAPRINE [Concomitant]
     Dosage: 10 MG, QD
  12. ZOCOR [Concomitant]
     Dosage: 5 MG, UNK
  13. PRAMIPEXOLE [Concomitant]
     Dosage: 0.125 MG, UNK
  14. WARFARIN SODIUM [Concomitant]
     Dosage: 5 MG, UNK
  15. WARFARIN SODIUM [Concomitant]
     Dosage: 7.5 MG, Q1WEEK
  16. HYDROCODONE [Concomitant]
     Dosage: UNK
  17. NITROSTAT [Concomitant]
     Dosage: UNK, PRN

REACTIONS (4)
  - Aphasia [Recovered/Resolved]
  - Chest discomfort [Recovered/Resolved]
  - Chest pain [Recovered/Resolved]
  - Dyspnoea [Recovered/Resolved]
